FAERS Safety Report 7249878-7 (Version None)
Quarter: 2011Q1

REPORT INFORMATION
  Report Type: 
  Country: None (occurrence: None)
  Receive Date: 20110128
  Receipt Date: 20100713
  Transmission Date: 20110831
  Serious: No
  Sender: FDA-Public Use
  Company Number: A0872188A

PATIENT
  Age: 46 Year
  Sex: Female

DRUGS (3)
  1. ZOLOFT [Suspect]
     Indication: BIPOLAR DISORDER
     Dosage: 200MG PER DAY
     Route: 048
     Dates: start: 20050101
  2. NO CONCURRENT MEDICATION [Concomitant]
  3. WELLBUTRIN [Suspect]
     Indication: BIPOLAR DISORDER
     Route: 065

REACTIONS (3)
  - BLADDER DISORDER [None]
  - HIGH DENSITY LIPOPROTEIN DECREASED [None]
  - BLOOD TRIGLYCERIDES INCREASED [None]
